FAERS Safety Report 16209003 (Version 1)
Quarter: 2019Q2

REPORT INFORMATION
  Report Type: Spontaneous
  Country: US (occurrence: US)
  Receive Date: 20190417
  Receipt Date: 20190417
  Transmission Date: 20190711
  Serious: Yes (Hospitalization)
  Sender: FDA-Public Use
  Company Number: US-AMREGENT-20190738

PATIENT
  Age: 15 Year
  Sex: Male

DRUGS (10)
  1. MILRINONE [Concomitant]
     Active Substance: MILRINONE
     Dosage: UNKNOWN (CONTINUOUS)
     Route: 042
  2. DUONEB [Concomitant]
     Active Substance: ALBUTEROL SULFATE\IPRATROPIUM BROMIDE
     Dosage: UNKNOWN
     Route: 065
  3. MAGNESIUM [Concomitant]
     Active Substance: MAGNESIUM
     Dosage: UNKNOWN
     Route: 042
  4. EPINEPHRINE INJECTION, USP (0517-1071-01) [Suspect]
     Active Substance: EPINEPHRINE
     Dosage: UNKNOWN
     Route: 042
  5. TERBUTALINE [Concomitant]
     Active Substance: TERBUTALINE
     Dosage: UNKNOWN
     Route: 042
  6. KETAMINE [Suspect]
     Active Substance: KETAMINE
     Dosage: UNKNOWN
     Route: 042
  7. ALBUTEROL. [Concomitant]
     Active Substance: ALBUTEROL
     Dosage: UNKNOWN (CONTINUOUS)
     Route: 042
  8. UNSPECIFIED STEROIDS [Concomitant]
     Active Substance: UNSPECIFIED INGREDIENT
     Dosage: UNKNOWN
     Route: 065
  9. NOREPINEPHRINE. [Concomitant]
     Active Substance: NOREPINEPHRINE
     Dosage: UNKNOWN (CONTINUOUS)
     Route: 042
  10. SOLU-MEDROL [Concomitant]
     Active Substance: METHYLPREDNISOLONE SODIUM SUCCINATE
     Dosage: UNKNOWN
     Route: 065

REACTIONS (5)
  - Myocardial ischaemia [Recovered/Resolved]
  - Product use in unapproved indication [Unknown]
  - Electrocardiogram ST segment depression [Recovered/Resolved]
  - Hypertension [Recovered/Resolved]
  - Coronary artery compression [Recovered/Resolved]
